FAERS Safety Report 5841107-1 (Version None)
Quarter: 2008Q3

REPORT INFORMATION
  Report Type: 
  Country: None (occurrence: None)
  Receive Date: 20080811
  Receipt Date: 20080811
  Transmission Date: 20090109
  Serious: No
  Sender: FDA-Public Use
  Company Number: None

PATIENT
  Age: 23 Year

DRUGS (1)
  1. MIRENA [Suspect]

REACTIONS (4)
  - ILL-DEFINED DISORDER [None]
  - MENSTRUATION IRREGULAR [None]
  - PELVIC INFLAMMATORY DISEASE [None]
  - URINARY TRACT INFECTION [None]
